FAERS Safety Report 20751436 (Version 22)
Quarter: 2024Q3

REPORT INFORMATION
  Report Type: Spontaneous
  Country: US (occurrence: US)
  Receive Date: 20220426
  Receipt Date: 20240918
  Transmission Date: 20241017
  Serious: No
  Sender: PFIZER
  Company Number: US-PFIZER INC-2020510877

PATIENT
  Age: 68 Year
  Sex: Female

DRUGS (2)
  1. IBRANCE [Suspect]
     Active Substance: PALBOCICLIB
     Indication: Breast cancer female
     Dosage: 100 MG, CYCLIC (1 TABLET DAILY WITH FOOD ON DAYS 8-28 OF THE CHEMO CYCLE)
     Route: 048
  2. IBRANCE [Suspect]
     Active Substance: PALBOCICLIB
     Dosage: 100 MG, CYCLIC (1 TABLET DAILY. TAKE WITH FOOD DAYS 8 THROUGH 28 OF CHEMOTHERAPY CYCLE)
     Route: 048

REACTIONS (2)
  - Neutrophil count abnormal [Unknown]
  - Blood test abnormal [Unknown]
